FAERS Safety Report 5334962-5 (Version None)
Quarter: 2007Q2

REPORT INFORMATION
  Report Type: 
  Country: None (occurrence: None)
  Receive Date: 20070522
  Receipt Date: 20070508
  Transmission Date: 20071010
  Serious: Yes (Death)
  Sender: FDA-Public Use
  Company Number: MEDI-00057743

PATIENT
  Age: 6 Month
  Sex: Male

DRUGS (1)
  1. SYNAGIS [Suspect]
     Dosage: INTRAMUSCULAR
     Route: 030
     Dates: start: 20070315, end: 20070315

REACTIONS (8)
  - ACUTE RESPIRATORY DISTRESS SYNDROME [None]
  - BODY TEMPERATURE DECREASED [None]
  - DRUG INEFFECTIVE [None]
  - HEART RATE INCREASED [None]
  - NASAL CONGESTION [None]
  - PALLOR [None]
  - RESPIRATORY SYNCYTIAL VIRUS BRONCHIOLITIS [None]
  - SHOCK [None]
